FAERS Safety Report 9508665 (Version 1)
Quarter: 2013Q1

REPORT INFORMATION
  Report Type: Spontaneous
  Country: US (occurrence: None)
  Receive Date: 20130305
  Receipt Date: 20130305
  Transmission Date: 20140127
  Serious: Yes (Other)
  Sender: FDA-Public Use
  Company Number: 163-21880-11043674

PATIENT
  Age: 72 Year
  Sex: Female
  Weight: 62.6 kg

DRUGS (5)
  1. REVLIMID (LENALIDOMIDE) (25 MILLIGRAM, CAPSULES) [Suspect]
     Indication: PLASMA CELL MYELOMA
     Dosage: 25 MG, 1 IN 1 D, PO
     Route: 048
     Dates: start: 20101217, end: 20110427
  2. CYTOXAN (CYCLOPHOSPHAMIDE) [Concomitant]
  3. DEXAMETHASONE [Concomitant]
  4. CALTRATE WITH VITAMIN D [Suspect]
  5. MVI (MVI) [Concomitant]

REACTIONS (6)
  - Platelet count decreased [None]
  - Visual acuity reduced [None]
  - Neuropathy peripheral [None]
  - Pain [None]
  - Joint swelling [None]
  - Pruritus generalised [None]
